FAERS Safety Report 9827430 (Version 1)
Quarter: 2014Q1

REPORT INFORMATION
  Report Type: Spontaneous
  Country: US (occurrence: None)
  Receive Date: 20140116
  Receipt Date: 20140116
  Transmission Date: 20141002
  Serious: Yes (Disabling)
  Sender: FDA-Public Use
  Company Number: None

PATIENT
  Age: 77 Year
  Sex: Female
  Weight: 72.12 kg

DRUGS (1)
  1. HALOPERIDOL [Suspect]
     Indication: NERVE INJURY
     Dates: start: 20100719, end: 20101203

REACTIONS (2)
  - Nerve injury [None]
  - Pain [None]
